FAERS Safety Report 5720580-3 (Version None)
Quarter: 2008Q2

REPORT INFORMATION
  Report Type: 
  Country: None (occurrence: None)
  Receive Date: 20080429
  Receipt Date: 20080417
  Transmission Date: 20081010
  Serious: Yes (Life-Threatening, Hospitalization)
  Sender: FDA-Public Use
  Company Number: CH-BAYER-200816495GPV

PATIENT
  Age: 16 Year
  Sex: Female
  Weight: 46 kg

DRUGS (1)
  1. YASMIN [Suspect]
     Indication: ORAL CONTRACEPTION
     Route: 048

REACTIONS (6)
  - CARDIO-RESPIRATORY ARREST [None]
  - COMA [None]
  - HYPOXIC ENCEPHALOPATHY [None]
  - PULMONARY EMBOLISM [None]
  - SYNCOPE [None]
  - VERTIGO [None]
